FAERS Safety Report 22873053 (Version 2)
Quarter: 2023Q4

REPORT INFORMATION
  Report Type: Spontaneous
  Country: GD (occurrence: CA)
  Receive Date: 20230828
  Receipt Date: 20231020
  Transmission Date: 20240110
  Serious: Yes (Hospitalization, Other)
  Sender: FDA-Public Use
  Company Number: GD-Covis Pharma Europe B.V.-2023COV01565

PATIENT
  Age: 75 Year
  Sex: Male

DRUGS (7)
  1. TUDORZA PRESSAIR [Suspect]
     Active Substance: ACLIDINIUM BROMIDE
     Dosage: ACLIDINIUM 400 MCG TWICE DAILY
  2. MEPOLIZUMAB [Suspect]
     Active Substance: MEPOLIZUMAB
     Dosage: EVERY 4 WEEKS
     Route: 058
  3. RAMIPRIL [Suspect]
     Active Substance: RAMIPRIL
     Dosage: RAMIPRIL 10 MG ONCE DAILY
  4. DILTIAZEM [Suspect]
     Active Substance: DILTIAZEM
     Dosage: DILTIAZEM 180 MG ONCE DAILY
  5. ASPIRIN [Suspect]
     Active Substance: ASPIRIN
     Dosage: ASPIRIN 81 MG ONCE DAILY
  6. ALBUTEROL SULFATE [Suspect]
     Active Substance: ALBUTEROL SULFATE
     Dosage: ALBUTEROL SULFATE 2 PUFFS 4 TIMES DAILY, AS NEEDED
  7. BUDESONIDE\FORMOTEROL FUMARATE DIHYDRATE [Suspect]
     Active Substance: BUDESONIDE\FORMOTEROL FUMARATE DIHYDRATE
     Dosage: MICRONIZED BUDESONIDE/MICRONIZED FORMOTEROL FUMARATE DIHYDRATE 3 PUFFS 2 TIMES DAILY

REACTIONS (1)
  - COVID-19 pneumonia [Recovered/Resolved]

NARRATIVE: CASE EVENT DATE: 20200101
